FAERS Safety Report 19987998 (Version 1)
Quarter: 2021Q4

REPORT INFORMATION
  Report Type: Spontaneous
  Country: US (occurrence: US)
  Receive Date: 20211022
  Receipt Date: 20211022
  Transmission Date: 20220304
  Serious: Yes (Other)
  Sender: FDA-Public Use
  Company Number: US-GLAXOSMITHKLINE-USCH2021072541

PATIENT

DRUGS (1)
  1. ROBITUSSIN HONEY MAXIMUM STRENGTH COUGH AND CHEST CONGESTION DM [Suspect]
     Active Substance: DEXTROMETHORPHAN HYDROBROMIDE\GUAIFENESIN
     Indication: Cough
     Dosage: UNK

REACTIONS (4)
  - Mental impairment [Unknown]
  - Anxiety [Unknown]
  - Insomnia [Unknown]
  - Drug ineffective [Unknown]
